FAERS Safety Report 4834946-7 (Version None)
Quarter: 2005Q4

REPORT INFORMATION
  Report Type: 
  Country: None (occurrence: None)
  Receive Date: 20051115
  Receipt Date: 20050811
  Transmission Date: 20060501
  Serious: Yes (Other)
  Sender: FDA-Public Use
  Company Number: 2005099953

PATIENT
  Age: 49 Year
  Sex: Female
  Weight: 87.5442 kg

DRUGS (5)
  1. NATURAL CITRUS LISTERINE (MENTHOL, METHYL SALICYLATE, EUCALYPTOL, THYM [Suspect]
     Indication: DENTAL DISORDER PROPHYLAXIS
     Dosage: NOT EVEN HALF WAY IN 5 OZ. CUP, ONCE, ORAL TOPICAL
     Route: 048
     Dates: start: 20050621, end: 20050621
  2. LEVOTHYROXINE SODIUM [Concomitant]
  3. CLONIDINE [Concomitant]
  4. HYDROCHLOROTHIAZIDE [Concomitant]
  5. DIURETICS (DIURETICS) [Concomitant]

REACTIONS (11)
  - ABSCESS [None]
  - CALCINOSIS [None]
  - CAUSTIC INJURY [None]
  - FEELING ABNORMAL [None]
  - GLOSSODYNIA [None]
  - MOUTH ULCERATION [None]
  - ORAL INFECTION [None]
  - ORAL MUCOSAL BLISTERING [None]
  - THERMAL BURN [None]
  - TONGUE ULCERATION [None]
  - TOOTH DISCOLOURATION [None]
